FAERS Safety Report 9406320 (Version 2)
Quarter: 2013Q3

REPORT INFORMATION
  Report Type: Spontaneous
  Country: US (occurrence: US)
  Receive Date: 20130717
  Receipt Date: 20130821
  Transmission Date: 20140515
  Serious: Yes (Death)
  Sender: FDA-Public Use
  Company Number: US-ROCHE-1249942

PATIENT
  Sex: Male

DRUGS (8)
  1. ZELBORAF [Suspect]
     Indication: MALIGNANT MELANOMA
     Route: 065
  2. LISINOPRIL [Concomitant]
  3. EFFEXOR [Concomitant]
  4. OXYCODONE [Concomitant]
  5. WARFARIN [Concomitant]
  6. PROMETHAZINE [Concomitant]
  7. LANTUS [Concomitant]
  8. FENTANYL [Concomitant]

REACTIONS (1)
  - Malignant melanoma stage IV [Fatal]
